FAERS Safety Report 8401152 (Version 5)
Quarter: 2012Q4

REPORT INFORMATION
  Report Type: Report from Study
  Country: JP (occurrence: JP)
  Receive Date: 20120210
  Receipt Date: 20121205
  Transmission Date: 20130627
  Serious: Yes (Other)
  Sender: FDA-Public Use
  Company Number: JP-VERTEX PHARMACEUTICALS INC.-AE-2012-001925

PATIENT
  Age: 66 Year
  Sex: Male

DRUGS (10)
  1. VX-950 (TELAPREVIR) [Suspect]
     Indication: CHRONIC HEPATITIS C
     Dosage: 2250 mg, qd
     Route: 048
     Dates: start: 20120130, end: 20120203
  2. PEGINTERFERON ALFA-2B [Suspect]
     Indication: CHRONIC HEPATITIS C
     Dosage: 80 ?g, qw
     Route: 058
     Dates: start: 20120130, end: 20120227
  3. RIBAVIRIN [Suspect]
     Indication: CHRONIC HEPATITIS C
     Dosage: 600 mg, qd
     Route: 048
     Dates: start: 20120130, end: 20120214
  4. RIBAVIRIN [Suspect]
     Dosage: 400 mg, qd
     Route: 048
     Dates: start: 20120215, end: 20120220
  5. RIBAVIRIN [Suspect]
     Dosage: 200 mg, qd
     Route: 048
     Dates: start: 20120221, end: 20120227
  6. CLARITIN [Suspect]
     Indication: CHRONIC HEPATITIS C
     Dosage: 10 mg, qd
     Route: 048
     Dates: start: 20120130, end: 20120220
  7. ACINON [Concomitant]
     Dosage: 75 mg, qd
     Route: 048
     Dates: start: 20120201, end: 20120227
  8. BLOPRESS [Concomitant]
     Dosage: 8 mg, qd
     Route: 048
     Dates: end: 20120201
  9. CONIEL [Concomitant]
     Dosage: 4 mg, qd
     Route: 048
     Dates: end: 20120210
  10. FEBURIC [Concomitant]
     Dosage: 10 mg, qd
     Route: 048
     Dates: start: 20120211, end: 20120227

REACTIONS (7)
  - Renal disorder [Recovered/Resolved]
  - Dehydration [Not Recovered/Not Resolved]
  - Anaemia [Recovered/Resolved]
  - Blood uric acid increased [Not Recovered/Not Resolved]
  - Vomiting [Not Recovered/Not Resolved]
  - Decreased appetite [Not Recovered/Not Resolved]
  - Retinopathy [Recovered/Resolved]
